FAERS Safety Report 7191298-8 (Version None)
Quarter: 2010Q4

REPORT INFORMATION
  Report Type: 
  Country: None (occurrence: None)
  Receive Date: 20101223
  Receipt Date: 20101210
  Transmission Date: 20110411
  Serious: Yes (Disabling)
  Sender: FDA-Public Use
  Company Number: AU-CELGENEUS-008-20785-10091935

PATIENT
  Sex: Male

DRUGS (8)
  1. THALIDOMIDE [Suspect]
     Route: 048
     Dates: start: 20100824, end: 20100907
  2. DEXAMETHASONE [Concomitant]
     Route: 048
     Dates: start: 20100816, end: 20101202
  3. ZOMETA [Concomitant]
     Route: 051
     Dates: start: 20101029
  4. WARFARIN SODIUM [Concomitant]
     Route: 065
     Dates: start: 20060201
  5. CARTIA XT [Concomitant]
     Indication: STENT PLACEMENT
     Route: 065
     Dates: start: 20071001
  6. PLAVIX [Concomitant]
     Dates: start: 20071001
  7. ENDEP [Concomitant]
     Indication: DEPRESSION
     Route: 065
     Dates: start: 20060101
  8. SIMVASTATIN [Concomitant]
     Route: 065
     Dates: start: 20070101

REACTIONS (1)
  - PROCTALGIA [None]
